FAERS Safety Report 10956278 (Version 1)
Quarter: 2015Q1

REPORT INFORMATION
  Report Type: Spontaneous
  Country: GR (occurrence: None)
  Receive Date: 20150324
  Receipt Date: 20150324
  Transmission Date: 20150721
  Serious: Yes (Hospitalization)
  Sender: FDA-Public Use
  Company Number: 2015PRN00009

PATIENT
  Age: 80 Year
  Sex: Female

DRUGS (1)
  1. DONEPEZIL (DONEPEZIL) UNKNOWN [Suspect]
     Active Substance: DONEPEZIL
     Indication: DEMENTIA ALZHEIMER^S TYPE

REACTIONS (2)
  - Accidental overdose [None]
  - Myoclonus [None]
